FAERS Safety Report 14988017 (Version 1)
Quarter: 2018Q2

REPORT INFORMATION
  Report Type: Spontaneous
  Country: US (occurrence: US)
  Receive Date: 20180519
  Receipt Date: 20180519
  Transmission Date: 20180711
  Serious: No
  Sender: FDA-Public Use
  Company Number: None

PATIENT
  Age: 46 Year
  Sex: Female
  Weight: 117 kg

DRUGS (7)
  1. LIPITOR [Concomitant]
     Active Substance: ATORVASTATIN CALCIUM
  2. CONCERTA [Suspect]
     Active Substance: METHYLPHENIDATE HYDROCHLORIDE
     Indication: ATTENTION DEFICIT/HYPERACTIVITY DISORDER
     Dosage: ?          QUANTITY:1 TABLET(S);?
     Route: 048
     Dates: start: 20000601
  3. VITAMIN D [Concomitant]
     Active Substance: CHOLECALCIFEROL
  4. LYRICA [Concomitant]
     Active Substance: PREGABALIN
  5. METHOTREXATE. [Concomitant]
     Active Substance: METHOTREXATE
  6. MULTI VITAMIN [Concomitant]
     Active Substance: VITAMINS
  7. VITAMIN B COMPLEX [Concomitant]
     Active Substance: CYANOCOBALAMIN\DEXPANTHENOL\NIACINAMIDE\PYRIDOXINE HYDROCHLORIDE\RIBOFLAVIN 5^-PHOSPHATE SODIUM\THIAMINE HYDROCHLORIDE\VITAMIN B COMPLEX

REACTIONS (8)
  - Memory impairment [None]
  - Product substitution issue [None]
  - Confusional state [None]
  - Disturbance in attention [None]
  - Loss of personal independence in daily activities [None]
  - Agitation [None]
  - Product quality issue [None]
  - Impaired work ability [None]

NARRATIVE: CASE EVENT DATE: 20180301
